FAERS Safety Report 5679319-2 (Version None)
Quarter: 2008Q1

REPORT INFORMATION
  Report Type: 
  Country: None (occurrence: None)
  Receive Date: 20080325
  Receipt Date: 20080321
  Transmission Date: 20080703
  Serious: Yes (Death, Hospitalization)
  Sender: FDA-Public Use
  Company Number: US-BRISTOL-MYERS SQUIBB COMPANY-14123145

PATIENT
  Age: 81 Year
  Sex: Male
  Weight: 79 kg

DRUGS (4)
  1. CETUXIMAB [Suspect]
     Indication: COLON CANCER
     Dosage: INITIAL DOSE ON 17-OCT-2007
     Route: 042
     Dates: start: 20071219, end: 20071219
  2. FLUOROURACIL [Suspect]
     Indication: COLON CANCER
     Dosage: INITIAL DOSE:17-OCT-2007. DOSE REDUCED TO 1900 MG/M2.
     Route: 042
     Dates: start: 20071226, end: 20071226
  3. LEUCOVORIN CALCIUM [Suspect]
     Indication: COLON CANCER
     Dosage: INITIAL DOSE ON 17-OCT-2007
     Route: 042
     Dates: start: 20071226, end: 20071226
  4. OXALIPLATIN [Suspect]
     Indication: COLON CANCER
     Dosage: INITIAL DOSE: 17-OCT-2007. DOSE REDUCED TO 65MG/M2.
     Route: 042
     Dates: start: 20071226, end: 20071226

REACTIONS (5)
  - ANOREXIA [None]
  - DEHYDRATION [None]
  - DIARRHOEA [None]
  - PNEUMONIA [None]
  - PULMONARY CONGESTION [None]
